FAERS Safety Report 17638148 (Version 1)
Quarter: 2020Q2

REPORT INFORMATION
  Report Type: Spontaneous
  Country: GB (occurrence: GB)
  Receive Date: 20200407
  Receipt Date: 20200407
  Transmission Date: 20200713
  Serious: Yes (Other)
  Sender: FDA-Public Use
  Company Number: GB-ROCHE-2578058

PATIENT
  Age: 10 Year
  Sex: Male

DRUGS (1)
  1. SOMATROPIN. [Suspect]
     Active Substance: SOMATROPIN
     Indication: PRADER-WILLI SYNDROME
     Route: 058
     Dates: start: 201311, end: 20200312

REACTIONS (6)
  - Off label use [Unknown]
  - Idiopathic intracranial hypertension [Not Recovered/Not Resolved]
  - Strabismus [Unknown]
  - Circulatory collapse [Unknown]
  - Intentional product use issue [Unknown]
  - Visual impairment [Unknown]

NARRATIVE: CASE EVENT DATE: 201911
